FAERS Safety Report 13544433 (Version 3)
Quarter: 2017Q3

REPORT INFORMATION
  Report Type: Spontaneous
  Country: DE (occurrence: DE)
  Receive Date: 20170515
  Receipt Date: 20170719
  Transmission Date: 20171127
  Serious: Yes (Other)
  Sender: FDA-Public Use
  Company Number: DE-ROCHE-1933430

PATIENT
  Age: 27 Year
  Sex: Male

DRUGS (6)
  1. XOLAIR [Suspect]
     Active Substance: OMALIZUMAB
     Dosage: 2 DF
     Route: 065
     Dates: start: 20150615
  2. XOLAIR [Suspect]
     Active Substance: OMALIZUMAB
     Dosage: 2 DF
     Route: 065
     Dates: start: 20151229
  3. XOLAIR [Suspect]
     Active Substance: OMALIZUMAB
     Route: 065
     Dates: start: 201703
  4. XOLAIR [Suspect]
     Active Substance: OMALIZUMAB
     Indication: PRODUCT USED FOR UNKNOWN INDICATION
     Dosage: 1 DF
     Route: 065
     Dates: start: 20150225
  5. XOLAIR [Suspect]
     Active Substance: OMALIZUMAB
     Dosage: 4 DF
     Route: 065
     Dates: start: 20160128, end: 20160620
  6. XOLAIR [Suspect]
     Active Substance: OMALIZUMAB
     Dosage: 2 DF, EVERY WEEK
     Route: 065

REACTIONS (10)
  - Incorrect dose administered [Unknown]
  - Blood immunoglobulin E increased [Unknown]
  - Asthma [Unknown]
  - Dyspnoea [Unknown]
  - Blood cholesterol increased [Unknown]
  - Choking [Unknown]
  - Angioedema [Unknown]
  - Pruritus [Unknown]
  - Arthralgia [Unknown]
  - Overdose [Unknown]

NARRATIVE: CASE EVENT DATE: 20160128
